FAERS Safety Report 5920963-2 (Version None)
Quarter: 2008Q4

REPORT INFORMATION
  Report Type: 
  Country: None (occurrence: None)
  Receive Date: 20081014
  Receipt Date: 20080930
  Transmission Date: 20090506
  Serious: Yes (Hospitalization, Other)
  Sender: FDA-Public Use
  Company Number: 1000001129

PATIENT
  Age: 42 Year
  Sex: Female

DRUGS (2)
  1. ESCITALOPRAM OXALATE [Suspect]
     Indication: DEPRESSIVE SYMPTOM
     Dosage: 10 MG (10 MG, 1 IN 1 D), ORAL
     Route: 048
     Dates: start: 20080228
  2. ANGINA TREATMENT (NOS) [Suspect]
     Indication: PRINZMETAL ANGINA

REACTIONS (3)
  - ANGINA PECTORIS [None]
  - DRUG INTERACTION [None]
  - THERAPEUTIC PRODUCT INEFFECTIVE [None]
